FAERS Safety Report 8430843-9 (Version None)
Quarter: 2012Q2

REPORT INFORMATION
  Report Type: 
  Country: None (occurrence: None)
  Receive Date: 20120323
  Receipt Date: 20110630
  Transmission Date: 20120825
  Serious: Yes (Other)
  Sender: FDA-Public Use
  Company Number: 163-21880-11070262

PATIENT
  Age: 69 Year
  Sex: Male
  Weight: 95.5275 kg

DRUGS (7)
  1. REVLIMID [Suspect]
     Indication: MULTIPLE MYELOMA
     Dosage: 25 MG, 1 IN 1 D, PO
     Route: 048
     Dates: start: 20110603, end: 20110623
  2. MS CONTIN [Concomitant]
  3. MULTIVITAMIN [Concomitant]
  4. PREVACID [Concomitant]
  5. DECADRON [Concomitant]
  6. ZOMETA [Concomitant]
  7. NORCO [Concomitant]

REACTIONS (3)
  - PLEURITIC PAIN [None]
  - DYSPNOEA [None]
  - RIB FRACTURE [None]
